FAERS Safety Report 8928831 (Version 1)
Quarter: 2012Q4

REPORT INFORMATION
  Report Type: 
  Country: DE (occurrence: DE)
  Receive Date: 20121128
  Receipt Date: 20121128
  Transmission Date: 20130627
  Serious: Yes (Other)
  Sender: FDA-Public Use
  Company Number: DE-AMGEN-DEUSP2012075974

PATIENT
  Age: 78 Year
  Sex: Female

DRUGS (2)
  1. ENBREL [Suspect]
     Indication: PSORIASIS
     Dosage: 25 mg, 2x/week
     Dates: start: 20090430
  2. METHOTREXATE SODIUM [Suspect]
     Dosage: UNK
     Dates: end: 2007

REACTIONS (1)
  - Hepatic cirrhosis [Unknown]
